FAERS Safety Report 6214572-8 (Version None)
Quarter: 2009Q2

REPORT INFORMATION
  Report Type: 
  Country: None (occurrence: None)
  Receive Date: 20090604
  Receipt Date: 20090528
  Transmission Date: 20091009
  Serious: Yes (Hospitalization, Other)
  Sender: FDA-Public Use
  Company Number: PHEH2009US05405

PATIENT
  Sex: Female

DRUGS (10)
  1. RECLAST [Suspect]
     Indication: OSTEOPOROSIS
     Dosage: UNK
     Dates: start: 20090527, end: 20090527
  2. ASPIRIN [Concomitant]
     Dosage: 500 MG, UNK
  3. ACIPHEX [Concomitant]
     Dosage: 20 MG, UNK
  4. TOPROL-XL [Concomitant]
     Dosage: 25 MG, UNK
  5. SYNTHROID [Concomitant]
     Dosage: 0.088 MG, UNK
  6. SIMVASTATIN [Concomitant]
     Dosage: 40 MG, UNK
  7. ALPRAZOLAM [Concomitant]
     Dosage: 0.25 MG, UNK
  8. ACETAMINOPHEN AND HYDROCODONE BITARTRATE [Concomitant]
     Dosage: 5-325 MG
  9. CALCIUM [Concomitant]
     Dosage: 600 MG, UNK
  10. VITAMIN D [Concomitant]
     Dosage: 400 MG, UNK

REACTIONS (8)
  - ASTHENIA [None]
  - DYSKINESIA [None]
  - FATIGUE [None]
  - HEADACHE [None]
  - NAUSEA [None]
  - PAIN [None]
  - SPEECH DISORDER [None]
  - TREMOR [None]
